FAERS Safety Report 7376135-0 (Version None)
Quarter: 2011Q1

REPORT INFORMATION
  Report Type: 
  Country: None (occurrence: None)
  Receive Date: 20110325
  Receipt Date: 20110301
  Transmission Date: 20110831
  Serious: No
  Sender: FDA-Public Use
  Company Number: US-B.I. PHARMACEUTICALS,INC./RIDGEFIELD-2011-BP-05945BP

PATIENT
  Age: 79 Year
  Sex: Male

DRUGS (5)
  1. PREVACID [Concomitant]
     Indication: HIATUS HERNIA
     Route: 048
     Dates: start: 20080101
  2. SYMBICORT [Concomitant]
     Indication: ASTHMA
     Route: 048
     Dates: start: 20100101
  3. PRADAXA [Suspect]
     Indication: ATRIAL FIBRILLATION
     Dosage: 300 MG
     Route: 048
     Dates: start: 20110225
  4. SINGULAIR [Concomitant]
     Indication: ASTHMA
     Route: 048
  5. PROVENTIL [Concomitant]
     Indication: ASTHMA
     Route: 048

REACTIONS (2)
  - DYSPEPSIA [None]
  - CHEST PAIN [None]
